FAERS Safety Report 9937253 (Version 2)
Quarter: 2014Q1

REPORT INFORMATION
  Report Type: Spontaneous
  Country: US (occurrence: US)
  Receive Date: 20140302
  Receipt Date: 20140302
  Transmission Date: 20141002
  Serious: No
  Sender: FDA-Public Use
  Company Number: 2014SP001080

PATIENT
  Age: 66 Year
  Sex: Female

DRUGS (26)
  1. HALOPERIDOL DECANOATE [Suspect]
     Indication: AGITATION
     Route: 042
  2. HALOPERIDOL DECANOATE [Suspect]
     Indication: DELIRIUM
     Route: 042
  3. HALOPERIDOL DECANOATE [Suspect]
     Indication: AGITATION
     Route: 042
  4. HALOPERIDOL DECANOATE [Suspect]
     Indication: DELIRIUM
     Route: 042
  5. RISPERIDONE [Suspect]
     Indication: AGITATION
  6. RISPERIDONE [Suspect]
     Indication: DELIRIUM
  7. QUETIAPINE [Suspect]
     Indication: AGITATION
  8. QUETIAPINE [Suspect]
     Indication: DELIRIUM
  9. QUETIAPINE [Suspect]
     Indication: AGITATION
  10. QUETIAPINE [Suspect]
     Indication: DELIRIUM
  11. QUETIAPINE [Suspect]
     Indication: AGITATION
  12. QUETIAPINE [Suspect]
     Indication: DELIRIUM
  13. MIDAZOLAM [Concomitant]
     Indication: AGITATION
  14. MIDAZOLAM [Concomitant]
     Indication: DELIRIUM
  15. MORPHINE [Concomitant]
     Indication: AGITATION
  16. MORPHINE [Concomitant]
     Indication: DELIRIUM
  17. ALPRAZOLAM [Concomitant]
     Indication: AGITATION
  18. ALPRAZOLAM [Concomitant]
     Indication: DELIRIUM
  19. PROPOFOL [Concomitant]
     Indication: AGITATION
  20. PROPOFOL [Concomitant]
     Indication: DELIRIUM
  21. BUPROPION [Concomitant]
     Indication: AGITATION
  22. BUPROPION [Concomitant]
     Indication: DELIRIUM
  23. FLUOXETINE [Concomitant]
     Indication: AGITATION
  24. FLUOXETINE [Concomitant]
     Indication: DELIRIUM
  25. VALPROIC ACID [Concomitant]
     Indication: AGITATION
  26. VALPROIC ACID [Concomitant]
     Indication: DELIRIUM

REACTIONS (2)
  - Electrocardiogram QT prolonged [Unknown]
  - Atrioventricular block [Unknown]
